FAERS Safety Report 6713808-4 (Version None)
Quarter: 2010Q2

REPORT INFORMATION
  Report Type: 
  Country: None (occurrence: None)
  Receive Date: 20100426
  Receipt Date: 20091230
  Transmission Date: 20101027
  Serious: Yes (Hospitalization)
  Sender: FDA-Public Use
  Company Number: 2009BI041086

PATIENT
  Sex: Male

DRUGS (1)
  1. TYSABRI [Suspect]
     Indication: MULTIPLE SCLEROSIS
     Dosage: 300 MG;QM;IV
     Route: 042
     Dates: start: 20080822

REACTIONS (5)
  - APHTHOUS STOMATITIS [None]
  - MUSCULAR WEAKNESS [None]
  - NEURITIS CRANIAL [None]
  - STRESS [None]
  - VIRAL INFECTION [None]
